FAERS Safety Report 5081690-X (Version None)
Quarter: 2006Q3

REPORT INFORMATION
  Report Type: 
  Country: None (occurrence: None)
  Receive Date: 20060816
  Receipt Date: 20060815
  Transmission Date: 20061208
  Serious: Yes (Hospitalization)
  Sender: FDA-Public Use
  Company Number: US-BOEHRINGER INGELHEIM PHARMACEUTICALS, INC.-2006-BP-09473BP

PATIENT
  Age: 70 Year
  Sex: Female

DRUGS (4)
  1. MIRAPEX [Suspect]
     Indication: PARKINSON'S DISEASE
     Route: 048
     Dates: start: 20040101
  2. LEVOXYL [Concomitant]
     Indication: THYROID DISORDER
  3. SINEMET [Concomitant]
     Indication: PARKINSON'S DISEASE
  4. LOVASTATIN [Concomitant]
     Indication: BLOOD CHOLESTEROL

REACTIONS (3)
  - FALL [None]
  - HYPOAESTHESIA [None]
  - SURGERY [None]
